FAERS Safety Report 7868068-8 (Version None)
Quarter: 2011Q4

REPORT INFORMATION
  Report Type: 
  Country: None (occurrence: None)
  Receive Date: 20111028
  Receipt Date: 20111027
  Transmission Date: 20120403
  Serious: Yes (Hospitalization)
  Sender: FDA-Public Use
  Company Number: IT-ABBOTT-11P-083-0868869-00

PATIENT
  Age: 40 Year
  Sex: Male

DRUGS (4)
  1. DIAZEPAM [Suspect]
     Indication: SELF INJURIOUS BEHAVIOUR
     Dosage: ONCE
     Route: 048
     Dates: start: 20110621, end: 20110621
  2. VALPROIC ACID [Suspect]
     Indication: SELF INJURIOUS BEHAVIOUR
     Dosage: ONCE
     Route: 048
     Dates: start: 20110621, end: 20110621
  3. SEROQUEL [Suspect]
     Indication: SELF INJURIOUS BEHAVIOUR
     Dosage: ONCE
     Route: 048
     Dates: start: 20110621, end: 20110621
  4. LENDORMIN [Suspect]
     Indication: SELF INJURIOUS BEHAVIOUR
     Dosage: ONCE
     Route: 048
     Dates: start: 20110621, end: 20110621

REACTIONS (3)
  - SOPOR [None]
  - INTENTIONAL DRUG MISUSE [None]
  - BRADYPHRENIA [None]
